FAERS Safety Report 26208303 (Version 1)
Quarter: 2025Q4

REPORT INFORMATION
  Report Type: Spontaneous
  Country: EU (occurrence: EU)
  Receive Date: 20251229
  Receipt Date: 20251229
  Transmission Date: 20260117
  Serious: Yes (Hospitalization, Other)
  Sender: AMGEN
  Company Number: EU-AMGEN-FRASP2025255395

PATIENT
  Age: 75 Year
  Sex: Female
  Weight: 66 kg

DRUGS (7)
  1. BEVACIZUMAB [Suspect]
     Active Substance: BEVACIZUMAB
     Indication: Ovarian cancer
     Dosage: 950 MILLIGRAM
     Route: 040
     Dates: start: 20210106, end: 20210106
  2. DOSTARLIMAB [Suspect]
     Active Substance: DOSTARLIMAB
     Indication: Ovarian cancer
     Dosage: UNK
     Route: 065
     Dates: start: 20201216, end: 20210106
  3. CARBOPLATIN [Suspect]
     Active Substance: CARBOPLATIN
     Indication: Ovarian cancer
     Dosage: 420 MILLIGRAM
     Route: 040
     Dates: start: 20201125
  4. CARBOPLATIN [Suspect]
     Active Substance: CARBOPLATIN
     Dosage: 410 MILLIGRAM
     Route: 040
     Dates: start: 20201216
  5. CARBOPLATIN [Suspect]
     Active Substance: CARBOPLATIN
     Dosage: 380 MILLIGRAM, 1 HOUR
     Route: 040
     Dates: start: 20210106, end: 20210107
  6. PACLITAXEL [Suspect]
     Active Substance: PACLITAXEL
     Indication: Ovarian cancer
     Dosage: 288 MILLIGRAM
     Route: 040
     Dates: start: 20201125
  7. PACLITAXEL [Suspect]
     Active Substance: PACLITAXEL
     Dosage: 228 MILLIGRAM
     Route: 040
     Dates: start: 20210106, end: 20210106

REACTIONS (1)
  - Wound dehiscence [Recovered/Resolved]

NARRATIVE: CASE EVENT DATE: 20210125
